FAERS Safety Report 5928846-9 (Version None)
Quarter: 2008Q4

REPORT INFORMATION
  Report Type: 
  Country: None (occurrence: None)
  Receive Date: 20081020
  Receipt Date: 20081015
  Transmission Date: 20090506
  Serious: Yes (Death, Other)
  Sender: FDA-Public Use
  Company Number: 2007SP006648

PATIENT
  Age: 70 Year
  Sex: Female
  Weight: 42 kg

DRUGS (10)
  1. TEMODAL [Suspect]
     Indication: GLIOBLASTOMA MULTIFORME
     Dosage: 75 MG/M2; QD; PO
     Route: 048
     Dates: start: 20070213, end: 20070312
  2. FERON (INTERFERON) [Suspect]
     Indication: GLIOBLASTOMA MULTIFORME
     Dosage: 3 IU; TIW; IV
     Route: 042
     Dates: start: 20080213, end: 20080310
  3. BENAMBAX [Concomitant]
  4. PREDNISOLONE [Concomitant]
  5. NEO-MINOPHAGEN C [Concomitant]
  6. LEBENIN [Concomitant]
  7. TANNALBIN [Concomitant]
  8. EXCEGRAN [Concomitant]
  9. VANCOMYCIN HYDROCHLORIDE [Concomitant]
  10. FERON [Concomitant]

REACTIONS (8)
  - ACUTE RESPIRATORY DISTRESS SYNDROME [None]
  - ANAEMIA [None]
  - CYTOMEGALOVIRUS INFECTION [None]
  - DISSEMINATED INTRAVASCULAR COAGULATION [None]
  - HEPATIC FUNCTION ABNORMAL [None]
  - INTERSTITIAL LUNG DISEASE [None]
  - RESPIRATORY FAILURE [None]
  - SEPSIS [None]
